FAERS Safety Report 11165071 (Version 1)
Quarter: 2015Q2

REPORT INFORMATION
  Report Type: Spontaneous
  Country: US (occurrence: None)
  Receive Date: 20150603
  Receipt Date: 20150603
  Transmission Date: 20150821
  Serious: Yes (Life-Threatening, Hospitalization, Disabling)
  Sender: FDA-Public Use
  Company Number: None

PATIENT
  Age: 72 Year
  Sex: Male
  Weight: 115.67 kg

DRUGS (6)
  1. BYSTOLIC [Concomitant]
     Active Substance: NEBIVOLOL HYDROCHLORIDE
  2. LOSARTAN [Concomitant]
     Active Substance: LOSARTAN
  3. AMLODIPINE BESYLATE. [Concomitant]
     Active Substance: AMLODIPINE BESYLATE
  4. HYDROCHLOROTHIAZIDE. [Concomitant]
     Active Substance: HYDROCHLOROTHIAZIDE
  5. ELIGARD [Suspect]
     Active Substance: LEUPROLIDE ACETATE
     Indication: PROSTATE CANCER
     Dosage: QUARTERLY INJECTIONS
     Route: 030
     Dates: start: 20140101, end: 20140801
  6. ATORVASTATIN [Concomitant]
     Active Substance: ATORVASTATIN

REACTIONS (10)
  - Hot flush [None]
  - Dyspepsia [None]
  - Vomiting [None]
  - Coronary artery occlusion [None]
  - Dyspnoea [None]
  - Peripheral swelling [None]
  - Weight increased [None]
  - Asthenia [None]
  - Dizziness [None]
  - Joint swelling [None]

NARRATIVE: CASE EVENT DATE: 20150317
